FAERS Safety Report 9066732 (Version 1)
Quarter: 2013Q1

REPORT INFORMATION
  Report Type: Report from Study
  Country: US (occurrence: US)
  Receive Date: 20130131
  Receipt Date: 20130131
  Transmission Date: 20140127
  Serious: No
  Sender: FDA-Public Use
  Company Number: US-ABBOTT-12P-163-1016110-00

PATIENT
  Age: 49 Year
  Sex: Female

DRUGS (10)
  1. HUMIRA [Suspect]
     Indication: PSORIASIS
     Dosage: 80MG LOADING DOSE ON 29 NOV 2012
     Dates: start: 20121129
  2. METFORMIN [Concomitant]
     Indication: PRODUCT USED FOR UNKNOWN INDICATION
     Route: 048
  3. GLIPIZIDE [Concomitant]
     Indication: PRODUCT USED FOR UNKNOWN INDICATION
     Dosage: 2 TABS IN AM, 2 TABS AT BEDTIME
  4. LANTUS INSULIN [Concomitant]
     Indication: DIABETES MELLITUS
     Dosage: 60 UNITS IN AM, 48 UNITS AT NIGHT
  5. SIMVASTATIN [Concomitant]
     Indication: BLOOD CHOLESTEROL INCREASED
     Dosage: AT BEDTIME
  6. LOSARTAN [Concomitant]
     Indication: HYPERTENSION
     Dosage: 100MG DAILY
  7. GABAPENTIN [Concomitant]
     Indication: NEUROPATHY PERIPHERAL
     Route: 048
  8. BACLOFEN [Concomitant]
     Indication: MUSCLE SPASMS
     Dosage: 10MG, 2 AT BEDTIME AS REQUIRED
  9. TRAMADOL [Concomitant]
     Indication: PAIN
     Dosage: 50MG EVERY 8 HRS AS REQUIRED
  10. PROAIR [Concomitant]
     Indication: PRODUCT USED FOR UNKNOWN INDICATION
     Dosage: INHALER AS REQUIRED

REACTIONS (1)
  - Pain [Not Recovered/Not Resolved]
